FAERS Safety Report 17885560 (Version 2)
Quarter: 2020Q2

REPORT INFORMATION
  Report Type: Spontaneous
  Country: GB (occurrence: GB)
  Receive Date: 20200611
  Receipt Date: 20200630
  Transmission Date: 20200714
  Serious: Yes (Hospitalization, Other)
  Sender: FDA-Public Use
  Company Number: GB-MYLANLABS-2020M1055166

PATIENT
  Age: 29 Year
  Sex: Female

DRUGS (1)
  1. CLOZARIL [Suspect]
     Active Substance: CLOZAPINE
     Indication: SCHIZOPHRENIA
     Dosage: UNK
     Route: 048
     Dates: start: 20200522, end: 2020

REACTIONS (11)
  - Eosinophil count increased [Recovering/Resolving]
  - White blood cell count increased [Unknown]
  - Monocyte count increased [Unknown]
  - Tachycardia [Unknown]
  - Troponin T increased [Unknown]
  - Suspected COVID-19 [Unknown]
  - Pyrexia [Unknown]
  - Toothache [Unknown]
  - Malaise [Unknown]
  - Lymphocyte count decreased [Unknown]
  - Hospitalisation [Recovered/Resolved]

NARRATIVE: CASE EVENT DATE: 2020
